FAERS Safety Report 6376655-1 (Version None)
Quarter: 2009Q3

REPORT INFORMATION
  Report Type: 
  Country: None (occurrence: None)
  Receive Date: 20090925
  Receipt Date: 20090902
  Transmission Date: 20100115
  Serious: No
  Sender: FDA-Public Use
  Company Number: US-ROCHE-643497

PATIENT
  Sex: Female
  Weight: 74.4 kg

DRUGS (1)
  1. TAMIFLU [Suspect]
     Indication: INFLUENZA
     Dosage: PATIENT RECEIVED TWO DOSES
     Route: 048
     Dates: start: 20090630, end: 20090701

REACTIONS (2)
  - NO ADVERSE EVENT [None]
  - PREGNANCY [None]
